FAERS Safety Report 4340851-5 (Version None)
Quarter: 2004Q2

REPORT INFORMATION
  Report Type: 
  Country: None (occurrence: None)
  Receive Date: 20040419
  Receipt Date: 20040405
  Transmission Date: 20050107
  Serious: Yes (Hospitalization)
  Sender: FDA-Public Use
  Company Number: PHBS2004IT04722

PATIENT
  Age: 55 Year
  Sex: Female

DRUGS (7)
  1. CYCLOSPORINE [Suspect]
     Indication: STEM CELL TRANSPLANT
     Route: 065
  2. MYCOPHENOLATE MOFETIL [Suspect]
     Indication: STEM CELL TRANSPLANT
     Route: 065
  3. FLUDARABINE PHOSPHATE [Concomitant]
     Indication: STEM CELL TRANSPLANT
     Dosage: 30 MG/M2/D
  4. IRRADIATION [Concomitant]
     Dosage: 200 CGY
  5. NEUPOGEN [Concomitant]
     Indication: STEM CELL TRANSPLANT
  6. BUSULFAN [Concomitant]
     Indication: STEM CELL TRANSPLANT
     Dosage: 1 MG/KG, QID
     Route: 048
  7. METHOTREXATE [Concomitant]
     Indication: STEM CELL TRANSPLANT
     Dosage: UNK, UNK
     Route: 048

REACTIONS (11)
  - BONE MARROW DEPRESSION [None]
  - CATHETER RELATED INFECTION [None]
  - FEBRILE NEUTROPENIA [None]
  - GRAFT VERSUS HOST DISEASE [None]
  - MUCOSAL INFLAMMATION [None]
  - PANCYTOPENIA [None]
  - PLATELET COUNT DECREASED [None]
  - PSEUDOMONAL SEPSIS [None]
  - PYREXIA [None]
  - TRANSPLANT REJECTION [None]
  - WHITE BLOOD CELL COUNT DECREASED [None]
